FAERS Safety Report 15702496 (Version 1)
Quarter: 2018Q4

REPORT INFORMATION
  Report Type: Spontaneous
  Country: PT (occurrence: PT)
  Receive Date: 20181210
  Receipt Date: 20181210
  Transmission Date: 20190205
  Serious: Yes (Hospitalization, Other)
  Sender: FDA-Public Use
  Company Number: PT-ACCORD-095462

PATIENT
  Age: 15 Year
  Sex: Male

DRUGS (4)
  1. PIMOZIDE. [Suspect]
     Active Substance: PIMOZIDE
     Indication: TIC
  2. LAMOTRIGINE. [Suspect]
     Active Substance: LAMOTRIGINE
     Indication: ANXIETY
  3. FLUVOXAMINE [Suspect]
     Active Substance: FLUVOXAMINE
     Indication: INTENTIONAL SELF-INJURY
  4. CLONAZEPAM. [Suspect]
     Active Substance: CLONAZEPAM
     Indication: ANXIETY

REACTIONS (1)
  - Neuroleptic malignant syndrome [Unknown]
